FAERS Safety Report 7898038-5 (Version None)
Quarter: 2011Q4

REPORT INFORMATION
  Report Type: 
  Country: None (occurrence: None)
  Receive Date: 20111107
  Receipt Date: 20111107
  Transmission Date: 20120403
  Serious: Yes (Hospitalization, Other)
  Sender: FDA-Public Use
  Company Number: None

PATIENT
  Age: 48 Year
  Sex: Male
  Weight: 103.41 kg

DRUGS (1)
  1. QUETIAPINE FUMARATE [Suspect]
     Indication: SCHIZOPHRENIA
     Dosage: 1 EVERY DAY 8PM MOOD CHANGES
     Dates: start: 20080101, end: 20111105

REACTIONS (2)
  - PRIAPISM [None]
  - ERECTION INCREASED [None]
